FAERS Safety Report 14599692 (Version 1)
Quarter: 2018Q1

REPORT INFORMATION
  Report Type: Spontaneous
  Country: RU (occurrence: RU)
  Receive Date: 20180305
  Receipt Date: 20180305
  Transmission Date: 20180509
  Serious: Yes (Hospitalization, Other)
  Sender: FDA-Public Use
  Company Number: RU-ASTRAZENECA-2018SE24970

PATIENT
  Age: 45 Year
  Sex: Male
  Weight: 74 kg

DRUGS (6)
  1. NOLPAZA [Concomitant]
     Active Substance: PANTOPRAZOLE SODIUM
  2. ATORIS [Concomitant]
     Active Substance: ATORVASTATIN CALCIUM
  3. BRILINTA [Suspect]
     Active Substance: TICAGRELOR
     Indication: MYOCARDIAL INFARCTION
     Route: 048
     Dates: start: 201707
  4. PERINEVA [Concomitant]
     Active Substance: PERINDOPRIL ERBUMINE
  5. CONCOR [Concomitant]
     Active Substance: BISOPROLOL FUMARATE
  6. AMIODARONE [Concomitant]
     Active Substance: AMIODARONE

REACTIONS (7)
  - Thyroid function test abnormal [Unknown]
  - Product use issue [Unknown]
  - Dyspnoea [Recovering/Resolving]
  - Increased tendency to bruise [Recovering/Resolving]
  - Arrhythmia [Recovering/Resolving]
  - Extrasystoles [Unknown]
  - Off label use [Unknown]
